FAERS Safety Report 10770130 (Version 1)
Quarter: 2015Q1

REPORT INFORMATION
  Report Type: Report from Study
  Country: KE (occurrence: KE)
  Receive Date: 20150206
  Receipt Date: 20150206
  Transmission Date: 20150721
  Serious: Yes (Death, Life-Threatening, Hospitalization)
  Sender: FDA-Public Use
  Company Number: KE-009507513-1502KEN002532

PATIENT
  Age: 42 Year
  Sex: Female

DRUGS (10)
  1. ISONIAZID. [Suspect]
     Active Substance: ISONIAZID
     Indication: HIV INFECTION
     Dosage: UNK
     Route: 048
     Dates: start: 20141110
  2. AZITHROMYCIN [Suspect]
     Active Substance: AZITHROMYCIN ANHYDROUS
     Indication: PRODUCT USED FOR UNKNOWN INDICATION
     Dosage: UNK
     Route: 065
     Dates: start: 20141110, end: 20141114
  3. EFAVIRENZ [Suspect]
     Active Substance: EFAVIRENZ
     Indication: HIV INFECTION
     Dosage: UNK
     Route: 048
     Dates: start: 20141110
  4. TENOFOVIR [Concomitant]
     Active Substance: TENOFOVIR
     Indication: HIV INFECTION
     Dosage: UNK
     Route: 065
     Dates: start: 20141110
  5. RALTEGRAVIR POTASSIUM [Suspect]
     Active Substance: RALTEGRAVIR POTASSIUM
     Indication: HIV INFECTION
     Dosage: UNK
     Route: 048
     Dates: start: 20141110
  6. ALBENDAZOLE [Suspect]
     Active Substance: ALBENDAZOLE
     Indication: HIV INFECTION
     Dosage: UNK
     Dates: start: 20141110, end: 20141110
  7. EMTRICITABINE [Concomitant]
     Active Substance: EMTRICITABINE
     Indication: HIV INFECTION
     Dosage: UNK
     Route: 048
     Dates: start: 20141110
  8. PYRIDOXINE [Concomitant]
     Active Substance: PYRIDOXINE
     Indication: HIV INFECTION
     Dosage: UNK
     Dates: start: 20141110
  9. FLUCONAZOLE. [Suspect]
     Active Substance: FLUCONAZOLE
     Indication: HIV INFECTION
     Dosage: UNK
     Route: 065
     Dates: start: 20141110
  10. SEPTRIN [Concomitant]
     Active Substance: SULFAMETHOXAZOLE\TRIMETHOPRIM
     Indication: HIV INFECTION
     Dosage: UNK
     Dates: start: 20141008

REACTIONS (4)
  - Cachexia [Not Recovered/Not Resolved]
  - Death [Fatal]
  - Oral candidiasis [Not Recovered/Not Resolved]
  - Gastroenteritis [Not Recovered/Not Resolved]

NARRATIVE: CASE EVENT DATE: 20141116
